FAERS Safety Report 7726937-3 (Version None)
Quarter: 2011Q3

REPORT INFORMATION
  Report Type: 
  Country: None (occurrence: None)
  Receive Date: 20110902
  Receipt Date: 20110825
  Transmission Date: 20111222
  Serious: Yes (Other)
  Sender: FDA-Public Use
  Company Number: US-ASTRAZENECA-2011SE12640

PATIENT
  Age: 31 Year
  Sex: Female

DRUGS (5)
  1. DEPAKOTE [Concomitant]
     Dosage: 500-1000 MG
     Dates: start: 20080301
  2. SEROQUEL [Suspect]
     Route: 048
     Dates: start: 20080301, end: 20080307
  3. TRAZODONE HCL [Concomitant]
     Dosage: 50-100 MG
     Dates: start: 20080301
  4. TRICOR [Concomitant]
     Indication: BLOOD TRIGLYCERIDES INCREASED
     Dates: start: 20080901
  5. TOPAMAX [Concomitant]
     Dates: end: 20080307

REACTIONS (6)
  - DIABETIC NEPHROPATHY [None]
  - PANCREATITIS [None]
  - DIABETIC COMA [None]
  - DIABETES MELLITUS INADEQUATE CONTROL [None]
  - WEIGHT INCREASED [None]
  - TYPE 2 DIABETES MELLITUS [None]
